FAERS Safety Report 10336711 (Version 2)
Quarter: 2014Q3

REPORT INFORMATION
  Report Type: Spontaneous
  Country: US (occurrence: US)
  Receive Date: 20140723
  Receipt Date: 20140723
  Transmission Date: 20150326
  Serious: No
  Sender: FDA-Public Use
  Company Number: US-GALDERMA-US13003683

PATIENT
  Age: 76 Year
  Sex: Male

DRUGS (8)
  1. FISH OIL [Concomitant]
     Active Substance: FISH OIL
     Dosage: 1000
     Route: 048
     Dates: start: 20131023
  2. LATANOPROST. [Concomitant]
     Active Substance: LATANOPROST
     Dates: start: 20121224
  3. XARELTO [Concomitant]
     Active Substance: RIVAROXABAN
     Indication: HEART RATE IRREGULAR
     Dosage: 20 MG
     Route: 048
     Dates: start: 20130402
  4. ORACEA [Suspect]
     Active Substance: DOXYCYCLINE
     Indication: ROSACEA
     Dosage: 40MG
     Route: 048
     Dates: start: 201310
  5. TACLONEX [Concomitant]
     Active Substance: BETAMETHASONE DIPROPIONATE\CALCIPOTRIENE\CALCIPOTRIENE HYDRATE
     Dosage: 50 MG
     Dates: start: 20121130
  6. FOLIC ACID. [Concomitant]
     Active Substance: FOLIC ACID
     Dosage: 800 MCG
     Route: 048
     Dates: start: 20131023
  7. VITAMIN D 3 [Concomitant]
     Dosage: 2000 IU
     Route: 048
     Dates: start: 20131023
  8. DILTIAZEM HYDROCHLORIDE EXTENDED RELEASE [Concomitant]
     Active Substance: DILTIAZEM HYDROCHLORIDE
     Dosage: 120MG
     Route: 048
     Dates: start: 20130509

REACTIONS (5)
  - Local swelling [Recovering/Resolving]
  - Gingival disorder [Recovering/Resolving]
  - Oral disorder [Recovering/Resolving]
  - Gingival pain [Recovering/Resolving]
  - Drug ineffective for unapproved indication [Recovering/Resolving]

NARRATIVE: CASE EVENT DATE: 201310
